FAERS Safety Report 14225545 (Version 1)
Quarter: 2017Q4

REPORT INFORMATION
  Report Type: Spontaneous
  Country: US (occurrence: US)
  Receive Date: 20171127
  Receipt Date: 20171127
  Transmission Date: 20180321
  Serious: No
  Sender: FDA-Public Use
  Company Number: US-TEVA-798661ACC

PATIENT
  Sex: Female

DRUGS (2)
  1. HYDROCORTISONE. [Suspect]
     Active Substance: HYDROCORTISONE
     Indication: WOUND
     Dates: start: 20170807
  2. HYDROCORTISONE. [Suspect]
     Active Substance: HYDROCORTISONE
     Dates: start: 20170728

REACTIONS (5)
  - Dizziness [Unknown]
  - Erythema [Unknown]
  - Fatigue [Unknown]
  - Expired product administered [Unknown]
  - Pruritus [Unknown]
